FAERS Safety Report 6312571-9 (Version None)
Quarter: 2009Q3

REPORT INFORMATION
  Report Type: 
  Country: None (occurrence: None)
  Receive Date: 20090817
  Receipt Date: 20090616
  Transmission Date: 20100115
  Serious: No
  Sender: FDA-Public Use
  Company Number: US-ALLERGAN-0908326US

PATIENT
  Age: 78 Year
  Sex: Female

DRUGS (3)
  1. SANCTURA XR [Suspect]
     Indication: INCONTINENCE
     Dosage: 60 MG, QD
     Route: 048
     Dates: start: 20090603
  2. LIPITOR [Concomitant]
     Indication: DRUG USE FOR UNKNOWN INDICATION
  3. METAMUCIL [Concomitant]

REACTIONS (2)
  - CONSTIPATION [None]
  - DYSPEPSIA [None]
